FAERS Safety Report 21964639 (Version 1)
Quarter: 2023Q1

REPORT INFORMATION
  Report Type: Spontaneous
  Country: US (occurrence: US)
  Receive Date: 20230207
  Receipt Date: 20230207
  Transmission Date: 20230418
  Serious: No
  Sender: FDA-Public Use
  Company Number: US-PURDUE PHARMA-USA-2022-0297233

PATIENT

DRUGS (2)
  1. BUTRANS [Suspect]
     Active Substance: BUPRENORPHINE
     Indication: Product used for unknown indication
     Dosage: 5 MICROGRAM
     Route: 062
     Dates: start: 202206
  2. BUTRANS [Suspect]
     Active Substance: BUPRENORPHINE
     Dosage: 7.5 MICROGRAM
     Route: 062

REACTIONS (2)
  - Palpitations [Unknown]
  - Drug interaction [Unknown]
